FAERS Safety Report 15372206 (Version 1)
Quarter: 2018Q3

REPORT INFORMATION
  Report Type: Spontaneous
  Country: US (occurrence: US)
  Receive Date: 20180911
  Receipt Date: 20180911
  Transmission Date: 20181010
  Serious: Yes (Hospitalization)
  Sender: FDA-Public Use
  Company Number: US-ACTELION-A-NJ2018-178415

PATIENT
  Age: 16 Year
  Sex: Male

DRUGS (2)
  1. ZAVESCA [Suspect]
     Active Substance: MIGLUSTAT
     Indication: NIEMANN-PICK DISEASE
     Dosage: 100 MG, TID
     Route: 048
     Dates: start: 20180730
  2. KEPPRA [Concomitant]
     Active Substance: LEVETIRACETAM
     Dosage: 100 MG, TID
     Route: 048
     Dates: start: 20180806

REACTIONS (1)
  - Seizure [Unknown]
